FAERS Safety Report 4374479-8 (Version None)
Quarter: 2004Q2

REPORT INFORMATION
  Report Type: 
  Country: None (occurrence: None)
  Receive Date: 20040602
  Receipt Date: 20040308
  Transmission Date: 20050107
  Serious: No
  Sender: FDA-Public Use
  Company Number: 200414909BWH

PATIENT
  Sex: Male

DRUGS (5)
  1. LEVITRA [Suspect]
     Dosage: 5 MG TOTAL DAILY, ORAL  : 10 MG, TOTAL DAILY, ORAL
     Route: 048
  2. LIPITOR [Concomitant]
  3. METOPROLOL TARTRATE [Concomitant]
  4. LISINOPRIL [Concomitant]
  5. LEVITRA [Concomitant]

REACTIONS (1)
  - DRUG INEFFECTIVE [None]
